FAERS Safety Report 15305798 (Version 1)
Quarter: 2018Q3

REPORT INFORMATION
  Report Type: Spontaneous
  Country: US (occurrence: US)
  Receive Date: 20180822
  Receipt Date: 20180822
  Transmission Date: 20181010
  Serious: Yes (Hospitalization)
  Sender: FDA-Public Use
  Company Number: US-JNJFOC-20180816045

PATIENT
  Age: 43 Year
  Sex: Male
  Weight: 104.33 kg

DRUGS (3)
  1. TYLENOL EXTRA STRENGTH [Suspect]
     Active Substance: ACETAMINOPHEN
     Indication: PAIN
     Dosage: USED FOR 20 PLUS YEARS
     Route: 048
     Dates: start: 19980101, end: 20180501
  2. TYLENOL EXTRA STRENGTH [Suspect]
     Active Substance: ACETAMINOPHEN
     Indication: HEADACHE
     Dosage: USED FOR 20 PLUS YEARS
     Route: 048
     Dates: start: 19980101, end: 20180501
  3. TYLENOL EXTRA STRENGTH [Suspect]
     Active Substance: ACETAMINOPHEN
     Indication: PYREXIA
     Dosage: USED FOR 20 PLUS YEARS
     Route: 048
     Dates: start: 19980101, end: 20180501

REACTIONS (2)
  - Hepatic cirrhosis [Not Recovered/Not Resolved]
  - Splenomegaly [Not Recovered/Not Resolved]

NARRATIVE: CASE EVENT DATE: 20180501
